FAERS Safety Report 5195999-2 (Version None)
Quarter: 2006Q4

REPORT INFORMATION
  Report Type: 
  Country: None (occurrence: None)
  Receive Date: 20061218
  Receipt Date: 20061214
  Transmission Date: 20070319
  Serious: Yes (Other)
  Sender: FDA-Public Use
  Company Number: HQWYE260209JAN06

PATIENT
  Age: 4 Year

DRUGS (1)
  1. BENEFIX [Suspect]
     Indication: FACTOR IX DEFICIENCY
     Dosage: 1 DOSE OF 5 ML

REACTIONS (1)
  - FACTOR IX INHIBITION [None]
